FAERS Safety Report 4279515-5 (Version None)
Quarter: 2004Q1

REPORT INFORMATION
  Report Type: 
  Country: None (occurrence: None)
  Receive Date: 20040123
  Receipt Date: 20040107
  Transmission Date: 20041129
  Serious: Yes (Hospitalization, Other)
  Sender: FDA-Public Use
  Company Number: DSA_23795_2004

PATIENT
  Age: 76 Year
  Sex: Male
  Weight: 70 kg

DRUGS (6)
  1. TEMESTA [Suspect]
     Indication: SLEEP DISORDER
     Dates: start: 20031127, end: 20031127
  2. LIORESAL [Suspect]
     Indication: HICCUPS
     Dosage: 10 MG BID PO
     Route: 048
     Dates: start: 20031127, end: 20031128
  3. FLOXAPEN [Concomitant]
  4. INSULATARD NPH HUMAN [Concomitant]
  5. ACTRAPID HUMAN [Concomitant]
  6. BENERVA [Concomitant]

REACTIONS (4)
  - COMA [None]
  - DRUG INTERACTION [None]
  - FALL [None]
  - SOMNOLENCE [None]
